FAERS Safety Report 17112979 (Version 6)
Quarter: 2020Q3

REPORT INFORMATION
  Report Type: Spontaneous
  Country: US (occurrence: US)
  Receive Date: 20191204
  Receipt Date: 20200811
  Transmission Date: 20201102
  Serious: Yes (Hospitalization)
  Sender: FDA-Public Use
  Company Number: US-ACTELION-A-NJ2019-198587

PATIENT
  Sex: Female

DRUGS (2)
  1. ELIQUIS [Concomitant]
     Active Substance: APIXABAN
  2. OPSUMIT [Suspect]
     Active Substance: MACITENTAN
     Indication: PULMONARY ARTERIAL HYPERTENSION
     Dosage: 10 MG, QD
     Route: 048
     Dates: start: 20180418

REACTIONS (12)
  - Cough [Unknown]
  - Multiple allergies [Unknown]
  - Fall [Unknown]
  - Medical device implantation [Unknown]
  - Lacrimation increased [Unknown]
  - Urinary tract obstruction [Unknown]
  - Cardiac operation [Unknown]
  - Fungal infection [Unknown]
  - Pneumonia [Unknown]
  - Balance disorder [Unknown]
  - Urinary tract infection [Unknown]
  - Infection [Unknown]
